FAERS Safety Report 8417953-7 (Version None)
Quarter: 2012Q2

REPORT INFORMATION
  Report Type: 
  Country: None (occurrence: None)
  Receive Date: 20120531
  Receipt Date: 20120523
  Transmission Date: 20120825
  Serious: Yes (Disabling, Other)
  Sender: FDA-Public Use
  Company Number: 2135225-2012-00044

PATIENT

DRUGS (1)
  1. AETHOXYSKLEROL [Suspect]

REACTIONS (1)
  - OCULAR PEMPHIGOID [None]
